FAERS Safety Report 5386251-0 (Version None)
Quarter: 2007Q3

REPORT INFORMATION
  Report Type: 
  Country: None (occurrence: None)
  Receive Date: 20070713
  Receipt Date: 20070702
  Transmission Date: 20080115
  Serious: No
  Sender: FDA-Public Use
  Company Number: PHBS2007NL10425

PATIENT

DRUGS (1)
  1. EXJADE [Suspect]

REACTIONS (1)
  - NEUROPATHY [None]
